FAERS Safety Report 16767066 (Version 3)
Quarter: 2023Q2

REPORT INFORMATION
  Report Type: Other
  Country: US (occurrence: None)
  Receive Date: 20190903
  Receipt Date: 20230509
  Transmission Date: 20230722
  Serious: Yes (Hospitalization)
  Sender: FDA-Public Use
  Company Number: US-ROCHE-2394536

PATIENT
  Age: 59 Year
  Sex: Female
  Weight: 87.168 kg

DRUGS (12)
  1. OCREVUS [Suspect]
     Active Substance: OCRELIZUMAB
     Indication: Relapsing-remitting multiple sclerosis
     Dosage: ONGOING: YES?SECOND SPLIT DOSE: 03/SEP/2019
     Route: 042
     Dates: start: 20190801
  2. OCREVUS [Suspect]
     Active Substance: OCRELIZUMAB
     Route: 042
     Dates: start: 202008, end: 202302
  3. CARAFATE [Concomitant]
     Active Substance: SUCRALFATE
     Dosage: TAKE 1 TABLET BY ORAL ROUTE 2 TIMES EVERY DAY ON AN EMPTY STOMACH 1 HOUR BEFORE?MEALS AND AT BED TIM
     Route: 048
  4. CEFTRIAXONE [Concomitant]
     Active Substance: CEFTRIAXONE
     Dosage: INJECT BY INTRAVENOUS ROUTE EVERYDAY AS DIRECTED.
     Route: 042
  5. COPAXONE [Concomitant]
     Active Substance: GLATIRAMER ACETATE
     Dosage: EVERYDAY
     Route: 058
  6. GLATOPA [Concomitant]
     Active Substance: GLATIRAMER ACETATE
     Route: 058
  7. IBUPROFEN [Concomitant]
     Active Substance: IBUPROFEN
     Route: 048
  8. LEVAQUIN [Concomitant]
     Active Substance: LEVOFLOXACIN
     Dosage: FOR 10 DAYS
  9. PROTONIX [Concomitant]
     Active Substance: PANTOPRAZOLE SODIUM
     Route: 048
  10. ROBAXIN [Concomitant]
     Active Substance: METHOCARBAMOL
     Route: 048
  11. SENNA [Concomitant]
     Active Substance: SENNA LEAF\SENNOSIDES\SENNOSIDES A AND B
     Route: 048
  12. TYLENOL EXTRA STRENGTH [Concomitant]
     Active Substance: ACETAMINOPHEN
     Indication: Pain
     Dosage: AS NEEDED
     Route: 048

REACTIONS (9)
  - Urinary tract infection [Recovered/Resolved]
  - Intestinal obstruction [Recovered/Resolved]
  - Sepsis [Recovered/Resolved]
  - Facial paralysis [Not Recovered/Not Resolved]
  - Oral pain [Recovered/Resolved]
  - Disturbance in attention [Not Recovered/Not Resolved]
  - Dysarthria [Not Recovered/Not Resolved]
  - Pain in extremity [Not Recovered/Not Resolved]
  - Gastrooesophageal reflux disease [Recovered/Resolved]

NARRATIVE: CASE EVENT DATE: 20190816
